FAERS Safety Report 8487128-4 (Version None)
Quarter: 2012Q3

REPORT INFORMATION
  Report Type: 
  Country: None (occurrence: None)
  Receive Date: 20120704
  Receipt Date: 20120702
  Transmission Date: 20120928
  Serious: Yes (Life-Threatening, Hospitalization, Other)
  Sender: FDA-Public Use
  Company Number: PHHY2012BR057092

PATIENT
  Sex: Female

DRUGS (1)
  1. DIOVAN [Suspect]

REACTIONS (6)
  - MALAISE [None]
  - CARDIOMYOPATHY [None]
  - HAEMATEMESIS [None]
  - FEELING ABNORMAL [None]
  - CONJUNCTIVITIS [None]
  - PNEUMONIA [None]
